FAERS Safety Report 23779876 (Version 1)
Quarter: 2024Q2

REPORT INFORMATION
  Report Type: Spontaneous
  Country: PL (occurrence: PL)
  Receive Date: 20240424
  Receipt Date: 20240424
  Transmission Date: 20240715
  Serious: Yes (Other)
  Sender: FDA-Public Use
  Company Number: None

PATIENT
  Age: 61 Year
  Sex: Female

DRUGS (2)
  1. DEPO-MEDROL [Suspect]
     Active Substance: METHYLPREDNISOLONE ACETATE
     Indication: Arthralgia
     Dosage: 40 MG, WEEKLY
     Route: 058
     Dates: start: 20200326, end: 20200326
  2. DEPO-MEDROL [Suspect]
     Active Substance: METHYLPREDNISOLONE ACETATE
     Dosage: 40 MG, WEEKLY
     Route: 058
     Dates: start: 20200402

REACTIONS (7)
  - Headache [Unknown]
  - Blood pressure increased [Unknown]
  - Syncope [Unknown]
  - Hypoaesthesia [Unknown]
  - Asthenia [Unknown]
  - Blood pressure fluctuation [Unknown]
  - Off label use [Unknown]

NARRATIVE: CASE EVENT DATE: 20200326
